FAERS Safety Report 9237086 (Version 2)
Quarter: 2014Q1

REPORT INFORMATION
  Report Type: Report from Study
  Country: US (occurrence: US)
  Receive Date: 20130417
  Receipt Date: 20140120
  Transmission Date: 20141002
  Serious: Yes (Disabling)
  Sender: FDA-Public Use
  Company Number: US-ACTELION-A-US2013-81821

PATIENT
  Age: 81 Year
  Sex: Female

DRUGS (8)
  1. TRACLEER [Suspect]
     Indication: PULMONARY ARTERIAL HYPERTENSION
     Dosage: 125 MG, BID
     Route: 048
     Dates: start: 2011
  2. NORVASC [Concomitant]
  3. SPIRIVA [Concomitant]
  4. PRILOSEC [Concomitant]
  5. MOBIC [Concomitant]
  6. TYLENOL [Concomitant]
  7. CELEXA [Concomitant]
  8. COZAAR [Concomitant]

REACTIONS (4)
  - Parkinson^s disease [Not Recovered/Not Resolved]
  - Speech disorder [Not Recovered/Not Resolved]
  - Pulmonary arterial hypertension [Not Recovered/Not Resolved]
  - Malaise [Unknown]
